FAERS Safety Report 4711335-7 (Version None)
Quarter: 2005Q3

REPORT INFORMATION
  Report Type: 
  Country: None (occurrence: None)
  Receive Date: 20050711
  Receipt Date: 20030407
  Transmission Date: 20060218
  Serious: Yes (Death, Hospitalization, Disabling, Other)
  Sender: FDA-Public Use
  Company Number: US-MERCK-0304USA00748

PATIENT
  Age: 65 Year
  Sex: Male
  Weight: 136 kg

DRUGS (26)
  1. SEROQUEL [Concomitant]
     Route: 065
  2. ATIVAN [Concomitant]
     Route: 065
  3. ATIVAN [Concomitant]
     Route: 065
     Dates: start: 20001101, end: 20001201
  4. MONOPRIL [Concomitant]
     Route: 048
     Dates: start: 19990902
  5. NORVASC [Concomitant]
     Route: 065
  6. LITHIUM CARBONATE [Concomitant]
     Route: 048
     Dates: start: 20001122
  7. LITHIUM CARBONATE [Concomitant]
     Route: 048
     Dates: start: 20001122
  8. ZYPREXA [Concomitant]
     Route: 048
     Dates: start: 20001124
  9. ZYPREXA [Concomitant]
     Route: 048
     Dates: start: 20001101
  10. ZITHROMAX [Concomitant]
     Route: 048
     Dates: start: 20001125, end: 20001128
  11. NAVANE [Concomitant]
     Route: 048
     Dates: start: 20001125, end: 20001201
  12. COGENTIN [Concomitant]
     Route: 048
     Dates: start: 20001125, end: 20001201
  13. TEGRETOL-XR [Concomitant]
     Route: 048
     Dates: start: 20001125, end: 20001201
  14. CLARITIN-D [Concomitant]
     Route: 065
  15. VIOXX [Suspect]
     Indication: BACK PAIN
     Route: 048
     Dates: start: 20001101
  16. ASPIRIN [Concomitant]
     Route: 065
     Dates: start: 20020405, end: 20040201
  17. COUMADIN [Concomitant]
     Route: 065
     Dates: start: 20010201, end: 20010712
  18. COUMADIN [Concomitant]
     Route: 065
     Dates: start: 20010201, end: 20010712
  19. COUMADIN [Concomitant]
     Route: 065
     Dates: start: 20020205, end: 20020511
  20. VIOXX [Suspect]
     Indication: SPINAL OSTEOARTHRITIS
     Route: 048
     Dates: start: 19990101
  21. VIOXX [Suspect]
     Route: 048
     Dates: start: 20001101, end: 20001101
  22. VIOXX [Suspect]
     Route: 048
     Dates: start: 20001101
  23. VIOXX [Suspect]
     Route: 048
     Dates: start: 19990101
  24. VIOXX [Suspect]
     Route: 048
     Dates: start: 20001101, end: 20001101
  25. NEURONTIN [Concomitant]
     Route: 065
  26. VICODIN [Concomitant]
     Route: 065

REACTIONS (62)
  - ABDOMINAL PAIN UPPER [None]
  - ACCIDENT AT HOME [None]
  - ACTIVATED PARTIAL THROMBOPLASTIN TIME PROLONGED [None]
  - ANGINA PECTORIS [None]
  - ANXIETY [None]
  - ATRIAL SEPTAL DEFECT [None]
  - BALANCE DISORDER [None]
  - BIPOLAR DISORDER [None]
  - BORDERLINE PERSONALITY DISORDER [None]
  - BRADYCARDIA [None]
  - BREAST PAIN [None]
  - BURSITIS [None]
  - CARDIAC ANEURYSM [None]
  - CARDIAC FAILURE CONGESTIVE [None]
  - CARDIOMEGALY [None]
  - CELLULITIS [None]
  - CEREBRAL INFARCTION [None]
  - CHEST PAIN [None]
  - CORONARY ARTERY DISEASE [None]
  - CORONARY ARTERY RESTENOSIS [None]
  - DEATH [None]
  - DIVERTICULUM [None]
  - DRUG ABUSER [None]
  - DRUG DEPENDENCE [None]
  - DYSPNOEA [None]
  - DYSTHYMIC DISORDER [None]
  - EMOTIONAL DISTRESS [None]
  - FIBROMYALGIA [None]
  - HAEMORRHOIDS [None]
  - HEADACHE [None]
  - HYPERKALAEMIA [None]
  - HYPERTROPHY BREAST [None]
  - HYPONATRAEMIA [None]
  - INJURY [None]
  - INTERMITTENT CLAUDICATION [None]
  - INTRACRANIAL ANEURYSM [None]
  - LACUNAR INFARCTION [None]
  - LEUKOCYTOSIS [None]
  - LIMB DISCOMFORT [None]
  - LUNG DISORDER [None]
  - MAJOR DEPRESSION [None]
  - MITRAL VALVE INCOMPETENCE [None]
  - MYOCARDIAL INFARCTION [None]
  - OBSESSIVE-COMPULSIVE DISORDER [None]
  - OEDEMA PERIPHERAL [None]
  - OVERDOSE [None]
  - PAIN [None]
  - PAIN IN EXTREMITY [None]
  - PANIC DISORDER WITH AGORAPHOBIA [None]
  - PNEUMONIA [None]
  - POLLAKIURIA [None]
  - POST-TRAUMATIC STRESS DISORDER [None]
  - PULMONARY HYPERTENSION [None]
  - SKIN CANCER [None]
  - SPINAL OSTEOARTHRITIS [None]
  - SUICIDAL IDEATION [None]
  - TRANSIENT ISCHAEMIC ATTACK [None]
  - TRICUSPID VALVE INCOMPETENCE [None]
  - UPPER RESPIRATORY TRACT INFECTION [None]
  - VARICES OESOPHAGEAL [None]
  - VENTRICULAR DYSFUNCTION [None]
  - WEIGHT INCREASED [None]
